FAERS Safety Report 6972677-8 (Version None)
Quarter: 2010Q3

REPORT INFORMATION
  Report Type: 
  Country: None (occurrence: None)
  Receive Date: 20100909
  Receipt Date: 20100223
  Transmission Date: 20110219
  Serious: No
  Sender: FDA-Public Use
  Company Number: US-KINGPHARMUSA00001-K201000217

PATIENT
  Sex: Female
  Weight: 95.238 kg

DRUGS (8)
  1. CYTOMEL [Suspect]
     Indication: TRI-IODOTHYRONINE DECREASED
     Dosage: 5 MCG, UNK
     Dates: start: 20030101, end: 20030101
  2. CYTOMEL [Suspect]
     Dosage: 3.125 MCG, UNK
     Dates: start: 20100221
  3. PREMARIN [Concomitant]
     Dosage: UNK
  4. PREVACID [Concomitant]
     Dosage: UNK
  5. FISH OIL [Concomitant]
  6. LEVOTHYROXINE SODIUM [Concomitant]
     Dosage: 66 MCG, UNK
     Dates: start: 19900101
  7. LEVOTHYROXINE SODIUM [Concomitant]
     Dosage: 75 MCG, UNK
     Dates: start: 20090101
  8. ACETAMINOPHEN [Concomitant]
     Indication: HEADACHE
     Dosage: UNK

REACTIONS (5)
  - BODY TEMPERATURE DECREASED [None]
  - CHEST DISCOMFORT [None]
  - FEELING ABNORMAL [None]
  - HEART RATE INCREASED [None]
  - PALPITATIONS [None]
